FAERS Safety Report 15402617 (Version 1)
Quarter: 2018Q3

REPORT INFORMATION
  Report Type: Spontaneous
  Country: US (occurrence: US)
  Receive Date: 20180919
  Receipt Date: 20180919
  Transmission Date: 20181010
  Serious: No
  Sender: FDA-Public Use
  Company Number: US-ACTELION-A-NJ2018-178748

PATIENT
  Age: 34 Year
  Sex: Female
  Weight: 67.12 kg

DRUGS (8)
  1. REMODULIN [Suspect]
     Active Substance: TREPROSTINIL
     Dosage: 7 NG/KG, CONT INFUS
     Route: 042
     Dates: start: 201808
  2. ADCIRCA [Concomitant]
     Active Substance: TADALAFIL
     Dosage: 0.014 NG/KG, CONT INFUS
     Dates: start: 20140725
  3. REMODULIN [Suspect]
     Active Substance: TREPROSTINIL
     Indication: PULMONARY ARTERIAL HYPERTENSION
     Dosage: 14 NG/KG, UNK
     Route: 042
     Dates: start: 20140725
  4. REMODULIN [Suspect]
     Active Substance: TREPROSTINIL
     Dosage: 6 NG/KG, CONT INFUS
     Route: 042
  5. REMODULIN [Suspect]
     Active Substance: TREPROSTINIL
     Dosage: 8 NG/KG, CONT INFUS
     Route: 042
  6. OPSUMIT [Concomitant]
     Active Substance: MACITENTAN
     Indication: PULMONARY ARTERIAL HYPERTENSION
     Route: 048
  7. WARFARIN [Concomitant]
     Active Substance: WARFARIN
  8. UPTRAVI [Suspect]
     Active Substance: SELEXIPAG
     Indication: PULMONARY ARTERIAL HYPERTENSION
     Dosage: 1000 MCG, BID
     Route: 048

REACTIONS (4)
  - Dyspnoea [Recovered/Resolved]
  - Pain in jaw [Recovered/Resolved]
  - Weight increased [Recovered/Resolved]
  - Headache [Recovered/Resolved]
